FAERS Safety Report 8933869 (Version 2)
Quarter: 2012Q4

REPORT INFORMATION
  Report Type: Report from Study
  Country: DE (occurrence: DE)
  Receive Date: 20121129
  Receipt Date: 20121219
  Transmission Date: 20130627
  Serious: Yes (Death, Hospitalization, Other)
  Sender: FDA-Public Use
  Company Number: DE-ROCHE-1161341

PATIENT
  Age: 71 Year
  Sex: Male
  Weight: 58.5 kg

DRUGS (1)
  1. METHOXY POLYETHYLENE GLYCOL-EPOETIN BETA [Suspect]
     Indication: NEPHROGENIC ANAEMIA
     Dosage: last dose prior to SAE: 13/Oct/2012
     Route: 042
     Dates: start: 20111121

REACTIONS (4)
  - Gastrointestinal disorder [Fatal]
  - Anaemia [Unknown]
  - Pneumonia [Unknown]
  - Anaemia [Unknown]
